FAERS Safety Report 8242858-4 (Version None)
Quarter: 2012Q1

REPORT INFORMATION
  Report Type: 
  Country: None (occurrence: None)
  Receive Date: 20120329
  Receipt Date: 20120320
  Transmission Date: 20120608
  Serious: Yes (Hospitalization)
  Sender: FDA-Public Use
  Company Number: CA-JNJFOC-20120310145

PATIENT
  Sex: Male
  Weight: 111.3 kg

DRUGS (8)
  1. REMICADE [Suspect]
     Indication: CROHN'S DISEASE
     Route: 042
     Dates: start: 20120208, end: 20120208
  2. CELEBREX [Concomitant]
     Route: 065
  3. METHOTREXATE [Concomitant]
     Route: 065
  4. FOLIC ACID [Concomitant]
     Route: 065
  5. LOMOTIL [Concomitant]
     Route: 065
  6. PREVACID [Concomitant]
     Route: 065
  7. FLOMAX [Concomitant]
     Route: 065
  8. CODEINE SULFATE [Concomitant]
     Route: 065

REACTIONS (1)
  - NEPHROLITHIASIS [None]
